FAERS Safety Report 6571764-6 (Version None)
Quarter: 2010Q1

REPORT INFORMATION
  Report Type: 
  Country: None (occurrence: None)
  Receive Date: 20100205
  Receipt Date: 20100126
  Transmission Date: 20100710
  Serious: Yes (Other)
  Sender: FDA-Public Use
  Company Number: CA-JNJFOC-20100111326

PATIENT
  Sex: Female
  Weight: 85 kg

DRUGS (15)
  1. REMICADE [Suspect]
     Indication: COLITIS ULCERATIVE
     Route: 042
  2. CALCIUM [Concomitant]
     Route: 048
  3. SLOW-K [Concomitant]
     Route: 048
  4. CITALOPRAM [Concomitant]
     Route: 048
  5. IMURAN [Concomitant]
  6. ASACOL [Concomitant]
  7. FOLIC ACID [Concomitant]
  8. VITAMIN D [Concomitant]
  9. ROCALTROL [Concomitant]
  10. SYNTHROID [Concomitant]
  11. FISH OIL [Concomitant]
  12. VITAMIN B-12 [Concomitant]
  13. VITAMIN B6 [Concomitant]
  14. PANAX GINSENG [Concomitant]
  15. IRON [Concomitant]

REACTIONS (4)
  - ARTHRALGIA [None]
  - CHEST PAIN [None]
  - EYELID OEDEMA [None]
  - JOINT SWELLING [None]
